FAERS Safety Report 11543661 (Version 2)
Quarter: 2015Q4

REPORT INFORMATION
  Report Type: Spontaneous
  Country: US (occurrence: US)
  Receive Date: 20150924
  Receipt Date: 20151006
  Transmission Date: 20160304
  Serious: No
  Sender: FDA-Public Use
  Company Number: US-AMGEN-USASP2015098162

PATIENT
  Age: 78 Year
  Sex: Female

DRUGS (2)
  1. ENBREL [Suspect]
     Active Substance: ETANERCEPT
     Indication: RHEUMATOID ARTHRITIS
     Dosage: 50 MG, ONCE WEEKLY
     Route: 058
     Dates: start: 2010
  2. ENBREL [Suspect]
     Active Substance: ETANERCEPT
     Indication: ARTHRITIS

REACTIONS (9)
  - Asthma [Unknown]
  - Bronchitis [Unknown]
  - Productive cough [Unknown]
  - Upper respiratory tract infection [Unknown]
  - Malaise [Unknown]
  - Pain [Unknown]
  - Drug administration error [Unknown]
  - Respiratory tract congestion [Unknown]
  - Device issue [Unknown]

NARRATIVE: CASE EVENT DATE: 2015
